FAERS Safety Report 4537566-7 (Version None)
Quarter: 2004Q4

REPORT INFORMATION
  Report Type: 
  Country: None (occurrence: None)
  Receive Date: 20041223
  Receipt Date: 20041005
  Transmission Date: 20050328
  Serious: Yes (Disabling)
  Sender: FDA-Public Use
  Company Number: US-MERCK-0410USA00662

PATIENT
  Age: 56 Year
  Sex: Male

DRUGS (7)
  1. VIOXX [Suspect]
     Indication: OSTEOARTHRITIS
     Route: 048
     Dates: start: 20040501, end: 20040801
  2. LIPITOR [Concomitant]
     Indication: BLOOD CHOLESTEROL INCREASED
     Route: 065
  3. COREG [Concomitant]
     Route: 065
  4. LOTREL [Concomitant]
     Route: 065
  5. ZETIA [Concomitant]
     Route: 065
  6. ASPIRIN [Concomitant]
     Route: 065
  7. BEXTRA [Concomitant]
     Route: 065
     Dates: start: 20020101

REACTIONS (3)
  - ISCHAEMIC CEREBRAL INFARCTION [None]
  - LACUNAR INFARCTION [None]
  - OPHTHALMOPLEGIA [None]
